FAERS Safety Report 9676084 (Version 2)
Quarter: 2013Q4

REPORT INFORMATION
  Report Type: Spontaneous
  Country: US (occurrence: US)
  Receive Date: 20131107
  Receipt Date: 20131120
  Transmission Date: 20140711
  Serious: No
  Sender: FDA-Public Use
  Company Number: US-BAXTER-2013BAX043464

PATIENT
  Age: 88 Year
  Sex: Male
  Weight: 76.27 kg

DRUGS (5)
  1. 0.9% SODIUM CHLORIDE INJECTION [Suspect]
     Indication: CATHETER MANAGEMENT
     Dosage: 8-10 CC FLUSH
     Route: 042
     Dates: start: 20131025, end: 20131025
  2. FLUDEOXYGLUCOSE (18F) [Suspect]
     Indication: DIFFUSE LARGE B-CELL LYMPHOMA
     Dosage: 13.7 MCI
     Route: 042
     Dates: start: 20131025, end: 20131025
  3. FLUDEOXYGLUCOSE (18F) [Suspect]
     Indication: EXTRANODAL MARGINAL ZONE B-CELL LYMPHOMA (MALT TYPE)
  4. FLUDEOXYGLUCOSE (18F) [Suspect]
     Indication: POSITRON EMISSION TOMOGRAM
  5. FLUDEOXYGLUCOSE (18F) [Suspect]
     Indication: SCAN

REACTIONS (3)
  - Feeling hot [Recovering/Resolving]
  - Asthenia [Recovering/Resolving]
  - Activities of daily living impaired [Recovering/Resolving]
